FAERS Safety Report 7989742-9 (Version None)
Quarter: 2011Q4

REPORT INFORMATION
  Report Type: 
  Country: None (occurrence: None)
  Receive Date: 20111219
  Receipt Date: 20111010
  Transmission Date: 20120403
  Serious: No
  Sender: FDA-Public Use
  Company Number: US-ASTRAZENECA-2011SE60726

PATIENT
  Age: 73 Year
  Sex: Male
  Weight: 88.5 kg

DRUGS (15)
  1. CRESTOR [Suspect]
     Dosage: 20 MG SINCE 2 MONTHS
     Route: 048
  2. LOR-DON [Concomitant]
  3. LECIPHIN [Concomitant]
  4. INDAPAMIDE [Concomitant]
  5. ISOSORBIDE MONO ER [Concomitant]
  6. VITAMIN B-12 [Concomitant]
  7. ASPIRIN [Concomitant]
  8. BESICARE [Concomitant]
  9. LEVOTHYROXINE SODIUM [Concomitant]
  10. OMEPRAZOLE [Concomitant]
  11. LEXAPRO [Concomitant]
  12. NITROSEAT [Concomitant]
  13. PLAVIX [Concomitant]
  14. ZINC [Concomitant]
  15. COLAS [Concomitant]
     Indication: LAXATIVE SUPPORTIVE CARE

REACTIONS (2)
  - DRUG DOSE OMISSION [None]
  - ULCER [None]
